FAERS Safety Report 4891168-1 (Version None)
Quarter: 2006Q1

REPORT INFORMATION
  Report Type: 
  Country: None (occurrence: None)
  Receive Date: 20060125
  Receipt Date: 20060103
  Transmission Date: 20060701
  Serious: Yes (Other)
  Sender: FDA-Public Use
  Company Number: US-GLAXOSMITHKLINE-A0587760A

PATIENT
  Age: 71 Year
  Sex: Male
  Weight: 102.3 kg

DRUGS (2)
  1. REQUIP [Suspect]
     Indication: RESTLESS LEGS SYNDROME
     Route: 048
     Dates: start: 20051110, end: 20051227
  2. LASIX [Concomitant]

REACTIONS (3)
  - BLOOD UREA INCREASED [None]
  - ELECTROLYTE IMBALANCE [None]
  - RENAL FAILURE [None]
